FAERS Safety Report 8387799-7 (Version None)
Quarter: 2012Q2

REPORT INFORMATION
  Report Type: 
  Country: None (occurrence: None)
  Receive Date: 20120525
  Receipt Date: 20120424
  Transmission Date: 20120825
  Serious: Yes (Disabling)
  Sender: FDA-Public Use
  Company Number: DE-GLAXOSMITHKLINE-D0075387A

PATIENT
  Sex: Male
  Weight: 80 kg

DRUGS (4)
  1. SORMODREN [Concomitant]
     Indication: SALIVARY HYPERSECRETION
     Dosage: 4MG UNKNOWN
     Route: 065
  2. MADOPAR [Concomitant]
     Indication: PARKINSON'S DISEASE
     Route: 065
  3. MELOXICAM [Concomitant]
     Indication: MYALGIA
     Route: 065
  4. REQUIP [Suspect]
     Indication: PARKINSON'S DISEASE
     Dosage: 4MG THREE TIMES PER DAY
     Route: 048

REACTIONS (1)
  - DIPLOPIA [None]
